FAERS Safety Report 4566850-6 (Version None)
Quarter: 2005Q1

REPORT INFORMATION
  Report Type: 
  Country: None (occurrence: None)
  Receive Date: 20050201
  Receipt Date: 20020418
  Transmission Date: 20050727
  Serious: Yes (Other)
  Sender: FDA-Public Use
  Company Number: US-BRISTOL-MYERS SQUIBB COMPANY-11836277

PATIENT
  Age: 24 Year
  Sex: Female

DRUGS (11)
  1. STADOL [Suspect]
     Route: 045
     Dates: start: 19970617, end: 20000401
  2. NEURONTIN [Concomitant]
  3. CARISOPRODOL [Concomitant]
  4. HYDROCODONE + ACETAMINOPHEN [Concomitant]
  5. HYDROXYZINE [Concomitant]
  6. LORAZEPAM [Concomitant]
  7. PROMETHAZINE [Concomitant]
  8. PREDNISONE [Concomitant]
  9. CYCLOBENZAPRINE [Concomitant]
  10. PROPOXYPHENE [Concomitant]
  11. ULTRAM [Concomitant]

REACTIONS (3)
  - DEPENDENCE [None]
  - DRUG WITHDRAWAL SYNDROME [None]
  - MEMORY IMPAIRMENT [None]
